FAERS Safety Report 9880002 (Version 27)
Quarter: 2017Q3

REPORT INFORMATION
  Report Type: Report from Study
  Country: CA (occurrence: CA)
  Receive Date: 20140207
  Receipt Date: 20170919
  Transmission Date: 20171128
  Serious: Yes (Hospitalization, Disabling, Other)
  Sender: FDA-Public Use
  Company Number: CA-ROCHE-1306794

PATIENT
  Age: 32 Year
  Sex: Female
  Weight: 60 kg

DRUGS (25)
  1. VITAMIN E [Concomitant]
     Active Substance: .ALPHA.-TOCOPHEROL
  2. PREDNISONE. [Concomitant]
     Active Substance: PREDNISONE
     Dosage: 5MG X 2 TABLETS A DAY FOR 5 DAYS
     Route: 065
  3. PANTOPRAZOLE [Concomitant]
     Active Substance: PANTOPRAZOLE
     Route: 065
  4. TYLENOL [Concomitant]
     Active Substance: ACETAMINOPHEN
     Indication: PREMEDICATION
     Route: 048
     Dates: start: 20161221
  5. TRIPLE OMEGA 3-6-9 [Concomitant]
  6. PLAQUENIL [Concomitant]
     Active Substance: HYDROXYCHLOROQUINE SULFATE
  7. VALTREX [Concomitant]
     Active Substance: VALACYCLOVIR HYDROCHLORIDE
  8. VITAMIN C [Concomitant]
     Active Substance: ASCORBIC ACID
  9. ACTEMRA [Suspect]
     Active Substance: TOCILIZUMAB
     Route: 042
     Dates: start: 20151005
  10. VITAMIN B12 [Concomitant]
     Active Substance: CYANOCOBALAMIN
  11. VITAMIN C [Concomitant]
     Active Substance: ASCORBIC ACID
  12. BENADRYL [Concomitant]
     Active Substance: DIPHENHYDRAMINE HYDROCHLORIDE
     Route: 042
  13. HYDROCORTISONE. [Concomitant]
     Active Substance: HYDROCORTISONE
     Indication: PREMEDICATION
     Route: 042
     Dates: start: 20161221
  14. ACTEMRA [Suspect]
     Active Substance: TOCILIZUMAB
     Route: 042
     Dates: start: 20131206
  15. ACTEMRA [Suspect]
     Active Substance: TOCILIZUMAB
     Route: 042
     Dates: start: 20161102
  16. METHOTREXATE. [Concomitant]
     Active Substance: METHOTREXATE
     Indication: RHEUMATOID ARTHRITIS
     Dosage: 1 SHOT
     Route: 065
     Dates: start: 20150901, end: 20150901
  17. METHOTREXATE. [Concomitant]
     Active Substance: METHOTREXATE
     Dosage: 1 SHOT
     Route: 065
     Dates: start: 20150916, end: 20150916
  18. OMEGA 3-6-9 (CANADA) [Concomitant]
  19. ACTEMRA [Suspect]
     Active Substance: TOCILIZUMAB
     Route: 042
     Dates: start: 20140711
  20. NAPROXEN. [Concomitant]
     Active Substance: NAPROXEN
     Route: 065
  21. SYNTHROID [Concomitant]
     Active Substance: LEVOTHYROXINE SODIUM
     Indication: HYPOTHYROIDISM
     Route: 048
     Dates: start: 20151205
  22. LAX-A-DAY [Concomitant]
  23. ACTEMRA [Suspect]
     Active Substance: TOCILIZUMAB
     Indication: RHEUMATOID ARTHRITIS
     Route: 042
     Dates: start: 20131015
  24. FOLIC ACID. [Concomitant]
     Active Substance: FOLIC ACID
     Route: 048
  25. BACLOFEN. [Concomitant]
     Active Substance: BACLOFEN
     Dosage: 10MG 1/2 TABLET
     Route: 065

REACTIONS (40)
  - Back pain [Recovered/Resolved]
  - Joint range of motion decreased [Not Recovered/Not Resolved]
  - Pharyngitis streptococcal [Recovered/Resolved]
  - Cough [Not Recovered/Not Resolved]
  - Nasal congestion [Recovered/Resolved]
  - Hypotension [Unknown]
  - Oral herpes [Unknown]
  - Ovarian cyst [Unknown]
  - Joint swelling [Recovered/Resolved]
  - Gastroenteritis viral [Recovered/Resolved]
  - Oral herpes [Unknown]
  - Abdominal discomfort [Recovered/Resolved]
  - Impaired healing [Unknown]
  - Blood pressure decreased [Unknown]
  - Dysphagia [Recovered/Resolved]
  - Panic attack [Unknown]
  - Productive cough [Recovered/Resolved]
  - Paraesthesia oral [Recovered/Resolved]
  - Malaise [Unknown]
  - Dyspepsia [Unknown]
  - Tremor [Recovered/Resolved]
  - Arthritis [Not Recovered/Not Resolved]
  - Abdominal pain [Not Recovered/Not Resolved]
  - Herpes virus infection [Unknown]
  - Depression [Unknown]
  - Rheumatoid arthritis [Recovering/Resolving]
  - Blood pressure fluctuation [Unknown]
  - Hormone level abnormal [Unknown]
  - Heart rate decreased [Unknown]
  - Haemorrhage [Unknown]
  - Rheumatoid arthritis [Not Recovered/Not Resolved]
  - Genital herpes [Recovered/Resolved]
  - Oropharyngeal pain [Not Recovered/Not Resolved]
  - Infusion related reaction [Unknown]
  - Nasopharyngitis [Recovering/Resolving]
  - Headache [Not Recovered/Not Resolved]
  - Uterine cyst [Unknown]
  - Fatigue [Not Recovered/Not Resolved]
  - Weight increased [Unknown]
  - Oxygen saturation decreased [Unknown]

NARRATIVE: CASE EVENT DATE: 20131117
